FAERS Safety Report 24990215 (Version 1)
Quarter: 2025Q1

REPORT INFORMATION
  Report Type: Spontaneous
  Country: US (occurrence: None)
  Receive Date: 20250219
  Receipt Date: 20250219
  Transmission Date: 20250408
  Serious: Yes (Hospitalization)
  Sender: FDA-CTU
  Company Number: None

PATIENT
  Sex: Male

DRUGS (4)
  1. SORAFENIB [Suspect]
     Active Substance: SORAFENIB
     Indication: Bone cancer
     Dosage: FREQUENCY : TWICE A DAY;?
     Route: 048
     Dates: start: 202412
  2. CABOMETYX [Suspect]
     Active Substance: CABOZANTINIB S-MALATE
  3. NEXAVAR [Concomitant]
     Active Substance: SORAFENIB
  4. SORAFENIB [Concomitant]
     Active Substance: SORAFENIB

REACTIONS (1)
  - Pneumothorax [None]
